FAERS Safety Report 17196331 (Version 1)
Quarter: 2019Q4

REPORT INFORMATION
  Report Type: Spontaneous
  Country: US (occurrence: US)
  Receive Date: 20191224
  Receipt Date: 20191224
  Transmission Date: 20200122
  Serious: Yes (Hospitalization, Other)
  Sender: FDA-Public Use
  Company Number: US-SCIEGEN PHARMACEUTICALS INC-2019SCILIT00382

PATIENT
  Age: 15 Year
  Sex: Female

DRUGS (4)
  1. LORAZEPAM. [Interacting]
     Active Substance: LORAZEPAM
  2. BUPROPION HYDROCHLORIDE. [Suspect]
     Active Substance: BUPROPION HYDROCHLORIDE
  3. SOYA OIL EMULSION [Interacting]
     Active Substance: SOYBEAN OIL
  4. SODIUM CHLORIDE. [Interacting]
     Active Substance: SODIUM CHLORIDE

REACTIONS (14)
  - Generalised tonic-clonic seizure [Recovered/Resolved]
  - Therapeutic product cross-reactivity [Recovered/Resolved]
  - Intentional overdose [Recovered/Resolved]
  - Respiratory alkalosis [Recovered/Resolved]
  - Postictal state [Recovered/Resolved]
  - Dyskinesia [Recovered/Resolved]
  - Somnolence [Recovered/Resolved]
  - Sinus tachycardia [Recovered/Resolved]
  - Metabolic acidosis [Recovered/Resolved]
  - Myoclonus [Recovered/Resolved]
  - Transaminases increased [Recovered/Resolved]
  - Vomiting [Recovered/Resolved]
  - Disorganised speech [Recovered/Resolved]
  - Eye movement disorder [Recovered/Resolved]
